FAERS Safety Report 5197371-8 (Version None)
Quarter: 2006Q4

REPORT INFORMATION
  Report Type: 
  Country: None (occurrence: None)
  Receive Date: 20060929
  Receipt Date: 20060511
  Transmission Date: 20070319
  Serious: Yes (Hospitalization)
  Sender: FDA-Public Use
  Company Number: FLX20060002

PATIENT
  Age: 83 Year
  Sex: Female

DRUGS (2)
  1. FLUOXETINE HCL [Suspect]
     Indication: DRUG USE FOR UNKNOWN INDICATION
     Dosage: 20 MG DAILY PO
     Route: 048
  2. ASPIRIN [Concomitant]

REACTIONS (1)
  - TORSADE DE POINTES [None]
